FAERS Safety Report 16552119 (Version 1)
Quarter: 2019Q3

REPORT INFORMATION
  Report Type: Spontaneous
  Country: US (occurrence: US)
  Receive Date: 20190710
  Receipt Date: 20190710
  Transmission Date: 20191004
  Serious: Yes (Hospitalization, Other)
  Sender: FDA-Public Use
  Company Number: US-SA-2019SA181729

PATIENT
  Age: 28 Year
  Sex: Male

DRUGS (1)
  1. TRIAMCINOLONE ACETONIDE. [Suspect]
     Active Substance: TRIAMCINOLONE ACETONIDE
     Indication: VOGT-KOYANAGI-HARADA DISEASE
     Dosage: UNK UNK, 1X
     Route: 031

REACTIONS (7)
  - Vitreous haemorrhage [Recovered/Resolved]
  - Papilloedema [Recovered/Resolved]
  - Visual acuity reduced [Recovered/Resolved]
  - Wrong technique in product usage process [Recovered/Resolved]
  - Visual impairment [Recovered/Resolved with Sequelae]
  - Iatrogenic injury [Recovered/Resolved]
  - Retinal detachment [Recovered/Resolved with Sequelae]
